FAERS Safety Report 5411642-9 (Version None)
Quarter: 2007Q3

REPORT INFORMATION
  Report Type: 
  Country: None (occurrence: None)
  Receive Date: 20070810
  Receipt Date: 20070730
  Transmission Date: 20080115
  Serious: Yes (Other)
  Sender: FDA-Public Use
  Company Number: US-PFIZER INC-2007064955

PATIENT
  Sex: Male
  Weight: 63.5 kg

DRUGS (3)
  1. CHANTIX [Suspect]
     Indication: SMOKING CESSATION THERAPY
     Dates: start: 20070219, end: 20070720
  2. PREDNISONE TAB [Suspect]
     Indication: CROHN'S DISEASE
     Dosage: DAILY DOSE:55MG
  3. MESALAZINE [Concomitant]

REACTIONS (2)
  - CROHN'S DISEASE [None]
  - DRUG INEFFECTIVE [None]
